FAERS Safety Report 18213241 (Version 3)
Quarter: 2023Q2

REPORT INFORMATION
  Report Type: Spontaneous
  Country: LV (occurrence: LV)
  Receive Date: 20200831
  Receipt Date: 20230428
  Transmission Date: 20230721
  Serious: Yes (Other)
  Sender: FDA-Public Use
  Company Number: LV-EMA-DD-20200810-SAHARAN_H-110643

PATIENT
  Age: 45 Year
  Sex: Female

DRUGS (9)
  1. ABACAVIR SULFATE\LAMIVUDINE [Suspect]
     Active Substance: ABACAVIR SULFATE\LAMIVUDINE
     Indication: HIV infection
     Dosage: UNK?ABACAVIR SULFATE + LAMIVUDINE
     Route: 065
     Dates: start: 2015
  2. EFAVIRENZ [Suspect]
     Active Substance: EFAVIRENZ
     Indication: HIV infection
     Dosage: UNK
     Dates: start: 2015
  3. EMTRICITABINE\TENOFOVIR [Suspect]
     Active Substance: EMTRICITABINE\TENOFOVIR
     Indication: HIV infection
     Dosage: UNK
     Route: 065
     Dates: start: 2019
  4. RALTEGRAVIR [Suspect]
     Active Substance: RALTEGRAVIR
     Indication: HIV infection
     Dosage: UNK
     Route: 065
     Dates: start: 2016
  5. ELVITEGRAVIR [Suspect]
     Active Substance: ELVITEGRAVIR
     Indication: HIV infection
     Dosage: UNK
     Route: 065
  6. COBICISTAT\DARUNAVIR ETHANOLATE [Suspect]
     Active Substance: COBICISTAT\DARUNAVIR ETHANOLATE
     Indication: HIV infection
     Dosage: UNK
     Route: 065
     Dates: start: 2019
  7. LOPINAVIR\RITONAVIR [Suspect]
     Active Substance: LOPINAVIR\RITONAVIR
     Indication: HIV infection
     Dosage: UNK
     Route: 065
     Dates: start: 2015
  8. RILPIVIRINE [Suspect]
     Active Substance: RILPIVIRINE
     Indication: HIV infection
     Dosage: UNK
     Route: 065
  9. DOLUTEGRAVIR [Suspect]
     Active Substance: DOLUTEGRAVIR
     Indication: Product used for unknown indication
     Dosage: UNK
     Route: 065

REACTIONS (5)
  - Blood HIV RNA increased [Unknown]
  - Drug resistance [Unknown]
  - Hyperhidrosis [Unknown]
  - Therapy change [Unknown]
  - Exposure during pregnancy [Unknown]

NARRATIVE: CASE EVENT DATE: 20150101
